FAERS Safety Report 5885284-5 (Version None)
Quarter: 2008Q3

REPORT INFORMATION
  Report Type: 
  Country: None (occurrence: None)
  Receive Date: 20080916
  Receipt Date: 20080904
  Transmission Date: 20090109
  Serious: Yes (Other)
  Sender: FDA-Public Use
  Company Number: JP-PFIZER INC-2008071362

PATIENT
  Sex: Male

DRUGS (12)
  1. CELECOX [Suspect]
     Indication: ARTHRALGIA
     Route: 048
     Dates: start: 20080524, end: 20080629
  2. DOXIL [Suspect]
     Indication: KAPOSI'S SARCOMA
     Dosage: DAILY DOSE:30MG
     Route: 042
     Dates: start: 20080421
  3. ZIAGEN [Concomitant]
     Indication: ACQUIRED IMMUNODEFICIENCY SYNDROME
     Route: 048
     Dates: start: 20080610
  4. KALETRA [Concomitant]
     Indication: ACQUIRED IMMUNODEFICIENCY SYNDROME
     Dosage: TEXT:2DF
     Route: 048
     Dates: start: 20080610
  5. EPIVIR [Concomitant]
     Indication: ACQUIRED IMMUNODEFICIENCY SYNDROME
     Route: 048
     Dates: start: 20080610
  6. FANSIDAR [Concomitant]
     Indication: CEREBRAL TOXOPLASMOSIS
     Route: 048
     Dates: start: 20080418, end: 20080604
  7. LEUCOVORIN CALCIUM [Concomitant]
     Indication: CEREBRAL TOXOPLASMOSIS
     Route: 048
     Dates: start: 20080418, end: 20080604
  8. CLINDAMYCIN HCL [Concomitant]
     Indication: CEREBRAL TOXOPLASMOSIS
     Route: 042
     Dates: start: 20080429, end: 20080604
  9. ETHAMBUTOL HCL [Concomitant]
     Indication: ATYPICAL MYCOBACTERIAL INFECTION
     Route: 048
     Dates: start: 20080503, end: 20080828
  10. CLARITHROMYCIN [Concomitant]
     Indication: ATYPICAL MYCOBACTERIAL INFECTION
     Route: 048
     Dates: start: 20080503, end: 20080828
  11. DRUG, UNSPECIFIED [Concomitant]
     Indication: ATYPICAL MYCOBACTERIAL INFECTION
     Route: 048
     Dates: start: 20080503, end: 20080828
  12. DRUG, UNSPECIFIED [Concomitant]
     Indication: CEREBRAL TOXOPLASMOSIS
     Route: 048
     Dates: start: 20080604

REACTIONS (1)
  - ENTEROCOLITIS HAEMORRHAGIC [None]
